FAERS Safety Report 15617466 (Version 2)
Quarter: 2018Q4

REPORT INFORMATION
  Report Type: Spontaneous
  Country: TR (occurrence: TR)
  Receive Date: 20181114
  Receipt Date: 20181114
  Transmission Date: 20190205
  Serious: Yes (Other)
  Sender: FDA-Public Use
  Company Number: PHHY2018TR152325

PATIENT
  Age: 12 Year
  Sex: Female

DRUGS (2)
  1. PREDNISOLONE. [Suspect]
     Active Substance: PREDNISOLONE
     Indication: RHEUMATIC FEVER
  2. PREDNISOLONE. [Suspect]
     Active Substance: PREDNISOLONE
     Indication: CARDITIS
     Dosage: 2 MG/KG, UNK (FOUR DIVIDED DOSES PER DAY)
     Route: 048

REACTIONS (1)
  - Bradycardia [Recovered/Resolved]
